FAERS Safety Report 7619730-3 (Version None)
Quarter: 2011Q3

REPORT INFORMATION
  Report Type: 
  Country: None (occurrence: None)
  Receive Date: 20110719
  Receipt Date: 20110711
  Transmission Date: 20111222
  Serious: Yes (Other)
  Sender: FDA-Public Use
  Company Number: US-SHIRE-ALL1-2011-02223

PATIENT
  Sex: Female
  Weight: 83.447 kg

DRUGS (4)
  1. LIALDA [Suspect]
     Indication: DIARRHOEA
  2. LIALDA [Suspect]
     Indication: COLITIS ULCERATIVE
     Dosage: 4.8 G, 1X/DAY:QD
     Route: 048
     Dates: start: 20070101, end: 20110705
  3. MESALAMINE [Concomitant]
     Indication: COLITIS ULCERATIVE
     Dosage: UNK, 1X/DAY:QD
     Route: 054
     Dates: start: 20070101, end: 20110101
  4. COUMADIN [Concomitant]
     Indication: HEART RATE IRREGULAR
     Dosage: 2.5 MG, 1X/DAY:QD
     Route: 048

REACTIONS (8)
  - PNEUMONITIS [None]
  - COMPUTERISED TOMOGRAM ABNORMAL [None]
  - DYSPNOEA [None]
  - ABDOMINAL PAIN [None]
  - PULMONARY FUNCTION TEST DECREASED [None]
  - HEART RATE IRREGULAR [None]
  - DRUG INEFFECTIVE [None]
  - CONDITION AGGRAVATED [None]
